FAERS Safety Report 6682684-0 (Version None)
Quarter: 2010Q2

REPORT INFORMATION
  Report Type: 
  Country: None (occurrence: None)
  Receive Date: 20100413
  Receipt Date: 20100331
  Transmission Date: 20101027
  Serious: Yes (Hospitalization, Other)
  Sender: FDA-Public Use
  Company Number: 2010SP019500

PATIENT
  Age: 66 Year
  Sex: Female
  Weight: 68.0396 kg

DRUGS (8)
  1. LOTRIMIN AF [Suspect]
     Indication: ONYCHOMYCOSIS
     Dosage: TOP
     Route: 061
     Dates: start: 20090101
  2. LOTRIMIN AF [Suspect]
     Indication: TINEA PEDIS
     Dosage: TOP
     Route: 061
     Dates: start: 20090101
  3. LAMISIL [Concomitant]
  4. IBUPROFEN [Concomitant]
  5. PRAVASTATIN [Concomitant]
  6. BENADRYL [Concomitant]
  7. SINGULAIR [Concomitant]
  8. BENZONATATE [Concomitant]

REACTIONS (3)
  - ATRIAL FIBRILLATION [None]
  - HEART VALVE INCOMPETENCE [None]
  - LOWER RESPIRATORY TRACT INFECTION [None]
